FAERS Safety Report 12821047 (Version 2)
Quarter: 2017Q2

REPORT INFORMATION
  Report Type: Spontaneous
  Country: US (occurrence: US)
  Receive Date: 20161007
  Receipt Date: 20170515
  Transmission Date: 20170830
  Serious: Yes (Hospitalization)
  Sender: FDA-Public Use
  Company Number: US-ASTRAZENECA-2016SF01898

PATIENT
  Age: 70 Year
  Sex: Female
  Weight: 72.6 kg

DRUGS (12)
  1. ATENOLOL. [Suspect]
     Active Substance: ATENOLOL
     Indication: BLOOD PRESSURE ABNORMAL
     Route: 048
  2. BRILINTA [Suspect]
     Active Substance: TICAGRELOR
     Indication: STENT PLACEMENT
     Route: 048
     Dates: start: 201609
  3. BRILINTA [Suspect]
     Active Substance: TICAGRELOR
     Indication: PLATELET DISORDER
     Route: 048
     Dates: start: 2016
  4. ASPIRIN. [Concomitant]
     Active Substance: ASPIRIN
     Indication: MYOCARDIAL INFARCTION
     Dosage: 70 OR 100 MG AT NIGHT
     Route: 048
     Dates: start: 201609
  5. ATORVASTATIN [Concomitant]
     Active Substance: ATORVASTATIN
     Indication: BLOOD PRESSURE ABNORMAL
     Route: 048
  6. BRILINTA [Suspect]
     Active Substance: TICAGRELOR
     Indication: MYOCARDIAL INFARCTION
     Route: 048
     Dates: start: 201609
  7. ASPIRIN. [Concomitant]
     Active Substance: ASPIRIN
     Indication: MYOCARDIAL INFARCTION
     Route: 048
  8. BRILINTA [Suspect]
     Active Substance: TICAGRELOR
     Indication: PLATELET DISORDER
     Route: 048
     Dates: start: 201609
  9. BRILINTA [Suspect]
     Active Substance: TICAGRELOR
     Indication: STENT PLACEMENT
     Route: 048
     Dates: start: 2016
  10. BRILINTA [Suspect]
     Active Substance: TICAGRELOR
     Indication: MYOCARDIAL INFARCTION
     Route: 048
     Dates: start: 2016
  11. AMITIZA [Concomitant]
     Active Substance: LUBIPROSTONE
     Indication: LOSS OF PERSONAL INDEPENDENCE IN DAILY ACTIVITIES
  12. AMLODIPINE [Concomitant]
     Active Substance: AMLODIPINE BESYLATE
     Indication: BLOOD PRESSURE ABNORMAL
     Route: 048

REACTIONS (20)
  - Nervousness [Unknown]
  - Hypertension [Unknown]
  - Skin lesion [Unknown]
  - Weight decreased [Unknown]
  - Skin ulcer [Unknown]
  - Skin discomfort [Unknown]
  - Dry mouth [Unknown]
  - Appetite disorder [Unknown]
  - Myocardial infarction [Unknown]
  - Gait disturbance [Unknown]
  - Chest pain [Unknown]
  - Fatigue [Unknown]
  - Contusion [Unknown]
  - Limb mass [Unknown]
  - Lip disorder [Unknown]
  - Haemorrhage [Unknown]
  - Thirst [Unknown]
  - Oedema peripheral [Unknown]
  - Hair disorder [Unknown]
  - Confusional state [Unknown]

NARRATIVE: CASE EVENT DATE: 2016
